FAERS Safety Report 21204876 (Version 1)
Quarter: 2022Q3

REPORT INFORMATION
  Report Type: Other
  Country: US (occurrence: None)
  Receive Date: 20220812
  Receipt Date: 20220812
  Transmission Date: 20221027
  Serious: Yes (Death)
  Sender: FDA-Public Use
  Company Number: US-ROCHE-2890628

PATIENT
  Age: 80 Year
  Sex: Male
  Weight: 78.088 kg

DRUGS (1)
  1. TECENTRIQ [Suspect]
     Active Substance: ATEZOLIZUMAB
     Indication: Prostate cancer
     Dosage: DATE OF SERVICE: 30/AUG/2021, 20/SEP/2021, 11/OCT/2021
     Route: 041

REACTIONS (3)
  - Off label use [Unknown]
  - Immune-mediated hepatitis [Fatal]
  - Small cell carcinoma [Fatal]

NARRATIVE: CASE EVENT DATE: 20211026
